FAERS Safety Report 4682910-3 (Version None)
Quarter: 2005Q2

REPORT INFORMATION
  Report Type: 
  Country: None (occurrence: None)
  Receive Date: 20050602
  Receipt Date: 20050201
  Transmission Date: 20051028
  Serious: No
  Sender: FDA-Public Use
  Company Number: US_0501110224

PATIENT
  Age: 40 Year
  Sex: Female

DRUGS (5)
  1. CYMBALTA [Suspect]
     Dosage: 30 MG DAY
     Dates: start: 20041114
  2. CELEBREX [Concomitant]
  3. ZYRTEC [Concomitant]
  4. XANAX (ALPRAZOLAM DUM) [Concomitant]
  5. ORAL CONTRACEPTIVE NOS [Concomitant]

REACTIONS (2)
  - BLOOD PRESSURE INCREASED [None]
  - HEADACHE [None]
